FAERS Safety Report 19252226 (Version 1)
Quarter: 2021Q2

REPORT INFORMATION
  Report Type: Spontaneous
  Country: GB (occurrence: GB)
  Receive Date: 20210512
  Receipt Date: 20210512
  Transmission Date: 20210717
  Serious: Yes (Death)
  Sender: FDA-Public Use
  Company Number: None

PATIENT
  Age: 7 Year
  Sex: Female
  Weight: 19 kg

DRUGS (2)
  1. BX PROTOCOL INJECTION (HOMEOPATHICS) [Suspect]
     Active Substance: HOMEOPATHICS
  2. MORPHINE [Concomitant]
     Active Substance: MORPHINE

REACTIONS (3)
  - Unresponsive to stimuli [None]
  - Shock [None]
  - Pain [None]

NARRATIVE: CASE EVENT DATE: 20120620
